FAERS Safety Report 23986393 (Version 1)
Quarter: 2024Q2

REPORT INFORMATION
  Report Type: Spontaneous
  Country: CA (occurrence: CA)
  Receive Date: 20240618
  Receipt Date: 20240618
  Transmission Date: 20240716
  Serious: Yes (Hospitalization, Other)
  Sender: FDA-Public Use
  Company Number: CA-OTSUKA-2024_016820

PATIENT
  Age: 62 Year
  Sex: Male

DRUGS (3)
  1. ABILIFY MAINTENA [Suspect]
     Active Substance: ARIPIPRAZOLE
     Indication: Product used for unknown indication
     Dosage: 425 MG (1 EVERY 28 DAYS)
     Route: 065
  2. PALIPERIDONE PALMITATE [Suspect]
     Active Substance: PALIPERIDONE PALMITATE
     Indication: Dementia
     Dosage: 625 MG (1 EVERY 20 DAYS)
     Route: 030
  3. PALIPERIDONE PALMITATE [Suspect]
     Active Substance: PALIPERIDONE PALMITATE
     Indication: Schizophrenia

REACTIONS (11)
  - Asthenopia [Unknown]
  - Bone pain [Unknown]
  - Spinal pain [Unknown]
  - Respiratory disorder [Unknown]
  - Visual impairment [Unknown]
  - Cardiac arrest [Unknown]
  - Pain in extremity [Unknown]
  - Back pain [Unknown]
  - Dizziness [Unknown]
  - Headache [Unknown]
  - Off label use [Unknown]
